FAERS Safety Report 7793309-5 (Version None)
Quarter: 2011Q3

REPORT INFORMATION
  Report Type: 
  Country: None (occurrence: None)
  Receive Date: 20110930
  Receipt Date: 20110930
  Transmission Date: 20111222
  Serious: Yes (Hospitalization)
  Sender: FDA-Public Use
  Company Number: None

PATIENT
  Age: 64 Year
  Sex: Male
  Weight: 132.4503 kg

DRUGS (2)
  1. JANTOVEN [Suspect]
     Indication: ATRIAL FIBRILLATION
     Dosage: 7.5MG QD PO
     Route: 048
     Dates: start: 20040801, end: 20110703
  2. IBUPROFEN [Suspect]
     Indication: PAIN
     Dosage: 400MG Q6 PRN PO
     Route: 048
     Dates: start: 20110331, end: 20110703

REACTIONS (2)
  - GASTROINTESTINAL ULCER [None]
  - UPPER GASTROINTESTINAL HAEMORRHAGE [None]
